FAERS Safety Report 14039507 (Version 1)
Quarter: 2017Q4

REPORT INFORMATION
  Report Type: Other
  Country: GB (occurrence: GB)
  Receive Date: 20171004
  Receipt Date: 20171004
  Transmission Date: 20180321
  Serious: Yes (Hospitalization, Other)
  Sender: FDA-Public Use
  Company Number: GB-HERITAGE PHARMACEUTICALS-2017HTG00290

PATIENT
  Age: 70 Year
  Sex: Male
  Weight: 82 kg

DRUGS (5)
  1. DUTASTERIDE. [Concomitant]
     Active Substance: DUTASTERIDE
     Dosage: 1 DOSAGE UNITS, 1X/DAY
     Dates: start: 20161214
  2. PROMETHAZINE HYDROCHLORIDE. [Concomitant]
     Active Substance: PROMETHAZINE HYDROCHLORIDE
     Dosage: 1 OR 2 DOSAGE UNITS, 1X/DAY
     Dates: start: 20170811, end: 20170821
  3. FLUOXETINE [Suspect]
     Active Substance: FLUOXETINE HYDROCHLORIDE
     Dosage: UNK
     Dates: start: 20170821
  4. OXYBUTYNIN. [Concomitant]
     Active Substance: OXYBUTYNIN CHLORIDE
     Dosage: 1 DOSAGE UNITS, 2X/DAY
     Dates: start: 20161230
  5. THEICAL-D3 [Concomitant]
     Dosage: 1 DOSAGE UNITS, 1X/DAY
     Dates: start: 20170510

REACTIONS (1)
  - Atrial flutter [Recovered/Resolved]

NARRATIVE: CASE EVENT DATE: 20170824
